FAERS Safety Report 18996604 (Version 1)
Quarter: 2021Q1

REPORT INFORMATION
  Report Type: Spontaneous
  Country: US (occurrence: US)
  Receive Date: 20210311
  Receipt Date: 20210311
  Transmission Date: 20210420
  Serious: Yes (Other)
  Sender: FDA-Public Use
  Company Number: US-HIKMA PHARMACEUTICALS USA INC.-US-H14001-21-01006

PATIENT
  Age: 68 Year
  Sex: Male

DRUGS (2)
  1. HEPARIN [Suspect]
     Active Substance: HEPARIN SODIUM
     Indication: ENDOCARDITIS
     Dosage: UNKNOWN
     Route: 041
  2. COUMADIN [Concomitant]
     Active Substance: WARFARIN SODIUM
     Indication: ENDOCARDITIS
     Dosage: UNKNOWN
     Route: 065

REACTIONS (2)
  - Haematoma muscle [Recovering/Resolving]
  - Femoral nerve palsy [Recovering/Resolving]
